FAERS Safety Report 7380850-2 (Version None)
Quarter: 2011Q1

REPORT INFORMATION
  Report Type: 
  Country: None (occurrence: None)
  Receive Date: 20110329
  Receipt Date: 20110322
  Transmission Date: 20110831
  Serious: Yes (Other)
  Sender: FDA-Public Use
  Company Number: B0708972A

PATIENT
  Age: 79 Year
  Sex: Male

DRUGS (3)
  1. SINTROM [Concomitant]
  2. FINASTERIDE [Concomitant]
  3. AVIDART [Suspect]
     Indication: BENIGN PROSTATIC HYPERPLASIA
     Dates: start: 20110201

REACTIONS (2)
  - UPPER GASTROINTESTINAL HAEMORRHAGE [None]
  - HAEMATEMESIS [None]
